FAERS Safety Report 15035827 (Version 1)
Quarter: 2018Q2

REPORT INFORMATION
  Report Type: Spontaneous
  Country: BE (occurrence: BE)
  Receive Date: 20180620
  Receipt Date: 20180620
  Transmission Date: 20180711
  Serious: Yes (Hospitalization, Other)
  Sender: FDA-Public Use
  Company Number: PHHY2018BE017828

PATIENT
  Age: 35 Year
  Sex: Female

DRUGS (2)
  1. ATOSIBAN [Suspect]
     Active Substance: ATOSIBAN
     Indication: MATERNAL THERAPY TO ENHANCE FOETAL LUNG MATURITY
     Route: 065
  2. BETAMETHASONE. [Suspect]
     Active Substance: BETAMETHASONE
     Indication: MATERNAL THERAPY TO ENHANCE FOETAL LUNG MATURITY
     Route: 065

REACTIONS (8)
  - Orthopnoea [Recovering/Resolving]
  - Pulmonary oedema [Recovering/Resolving]
  - Respiratory distress [Recovering/Resolving]
  - Pleural effusion [Recovering/Resolving]
  - Premature delivery [Unknown]
  - Maternal exposure during pregnancy [Unknown]
  - Hypoxia [Recovering/Resolving]
  - Dyspnoea [Recovering/Resolving]
